FAERS Safety Report 9915754 (Version 7)
Quarter: 2016Q2

REPORT INFORMATION
  Report Type: Spontaneous
  Country: US (occurrence: US)
  Receive Date: 20140221
  Receipt Date: 20160405
  Transmission Date: 20160815
  Serious: Yes (Hospitalization, Other)
  Sender: FDA-Public Use
  Company Number: US-MERCK-1402USA008029

PATIENT
  Sex: Male

DRUGS (2)
  1. AVODART [Concomitant]
     Active Substance: DUTASTERIDE
     Indication: PROSTATOMEGALY
     Dosage: UNK
     Route: 065
     Dates: start: 19970418, end: 20010125
  2. PROSCAR [Suspect]
     Active Substance: FINASTERIDE
     Indication: PROSTATOMEGALY
     Dosage: 5 MG, QD
     Route: 048
     Dates: start: 19970418, end: 20010125

REACTIONS (16)
  - Prostate cancer [Unknown]
  - Anxiety [Not Recovered/Not Resolved]
  - Depression [Not Recovered/Not Resolved]
  - Radical prostatectomy [Unknown]
  - Sexual dysfunction [Unknown]
  - Hypertension [Unknown]
  - Osteoarthritis [Unknown]
  - Coronary artery disease [Unknown]
  - Radiation injury [Recovered/Resolved]
  - Hypercholesterolaemia [Unknown]
  - Erectile dysfunction [Not Recovered/Not Resolved]
  - Inguinal hernia [Unknown]
  - Radiotherapy to prostate [Unknown]
  - Gastrooesophageal reflux disease [Unknown]
  - Gynaecomastia [Not Recovered/Not Resolved]
  - Prostatic specific antigen increased [Unknown]

NARRATIVE: CASE EVENT DATE: 1999
